FAERS Safety Report 20862732 (Version 2)
Quarter: 2022Q2

REPORT INFORMATION
  Report Type: Report from Study
  Country: PL (occurrence: None)
  Receive Date: 20220523
  Receipt Date: 20220601
  Transmission Date: 20220721
  Serious: Yes (Hospitalization)
  Sender: FDA-Public Use
  Company Number: PL-ROCHE-3091407

PATIENT
  Age: 72 Year
  Sex: Male
  Weight: 82 kg

DRUGS (35)
  1. GLOFITAMAB [Suspect]
     Active Substance: GLOFITAMAB
     Indication: Diffuse large B-cell lymphoma refractory
     Dosage: DATE OF MOST RECENT DOSE (30 MG) OF STUDY DRUG PRIOR TO SAE: 09/FEB/2022
     Route: 042
     Dates: start: 20211116
  2. OBINUTUZUMAB [Suspect]
     Active Substance: OBINUTUZUMAB
     Indication: Diffuse large B-cell lymphoma refractory
     Dosage: DATE OF MOST RECENT DOSE OF STUDY DRUG PRIOR TO SAE: 09/NOV/2021
     Route: 042
     Dates: start: 20211109
  3. GEMCITABINE [Suspect]
     Active Substance: GEMCITABINE
     Indication: Diffuse large B-cell lymphoma refractory
     Dosage: DATE OF MOST RECENT DOSE (1890 MG) OF STUDY DRUG PRIOR TO SAE: 09/FEB/2022
     Route: 042
     Dates: start: 20211110
  4. OXALIPLATIN [Suspect]
     Active Substance: OXALIPLATIN
     Indication: Diffuse large B-cell lymphoma refractory
     Dosage: DATE OF MOST RECENT DOSE (189 MG) OF STUDY DRUG PRIOR TO SAE: 09/FEB/2022
     Route: 042
     Dates: start: 20211110
  5. ARGADOPIN [Concomitant]
     Route: 048
     Dates: start: 202001
  6. ENOXAPARIN SODIUM [Concomitant]
     Active Substance: ENOXAPARIN SODIUM
     Indication: Thrombosis prophylaxis
     Route: 058
     Dates: start: 2020
  7. METFORMIX [Concomitant]
     Indication: Diabetes mellitus
     Route: 048
     Dates: start: 2017
  8. LINAGLIPTIN [Concomitant]
     Active Substance: LINAGLIPTIN
     Indication: Diabetes mellitus
     Route: 048
     Dates: start: 2019, end: 20220328
  9. LINAGLIPTIN [Concomitant]
     Active Substance: LINAGLIPTIN
     Route: 048
     Dates: start: 20220414, end: 20220415
  10. ATORVASTATIN [Concomitant]
     Active Substance: ATORVASTATIN
     Route: 048
     Dates: start: 202101
  11. BISOPROLOL [Concomitant]
     Active Substance: BISOPROLOL
     Indication: Hypertension
     Route: 048
     Dates: start: 202109
  12. RAMIPRIL [Concomitant]
     Active Substance: RAMIPRIL
     Indication: Hypertension
     Route: 048
     Dates: start: 202101
  13. OMEPRAZOLE [Concomitant]
     Active Substance: OMEPRAZOLE
     Indication: Gastritis prophylaxis
     Route: 048
     Dates: start: 202003
  14. BISEPTOL [Concomitant]
     Active Substance: SULFAMETHOXAZOLE\TRIMETHOPRIM
     Indication: Infection prophylaxis
     Route: 048
     Dates: start: 20211110, end: 20220328
  15. ACYCLOVIR [Concomitant]
     Active Substance: ACYCLOVIR
     Route: 048
     Dates: start: 20211110
  16. LEVOFLOXACIN [Concomitant]
     Active Substance: LEVOFLOXACIN
     Indication: Bronchitis
     Route: 048
     Dates: start: 20220301
  17. PREDNISONE [Concomitant]
     Active Substance: PREDNISONE
     Indication: Bronchitis
     Route: 048
     Dates: start: 20220308
  18. GENTAMICIN [Concomitant]
     Active Substance: GENTAMICIN
     Indication: COVID-19
     Dates: start: 20220328, end: 20220413
  19. PANTOPRAZOLE SODIUM [Concomitant]
     Active Substance: PANTOPRAZOLE SODIUM
     Dates: start: 20220328, end: 20220413
  20. FLUCOFAST [Concomitant]
     Indication: Urinary tract candidiasis
     Dates: start: 20220328, end: 20220413
  21. NOSPA [Concomitant]
     Indication: Cholelithiasis
  22. ACETAMINOPHEN [Concomitant]
     Active Substance: ACETAMINOPHEN
     Indication: Cholelithiasis
     Dates: start: 20220328, end: 20220413
  23. IBUPROFEN [Concomitant]
     Active Substance: IBUPROFEN
     Indication: Cholelithiasis
     Dates: start: 20220328, end: 20220413
  24. TIANEPTINE SODIUM [Concomitant]
     Active Substance: TIANEPTINE SODIUM
     Dates: start: 20220328, end: 20220413
  25. TIANEPTINE SODIUM [Concomitant]
     Active Substance: TIANEPTINE SODIUM
     Route: 048
     Dates: start: 20220414, end: 20220415
  26. OLUMIANT [Concomitant]
     Active Substance: BARICITINIB
     Dates: start: 20220328, end: 20220413
  27. OZICLIDE [Concomitant]
     Indication: Diabetes mellitus
     Route: 048
     Dates: start: 20220414, end: 20220415
  28. AVAMINA [Concomitant]
     Indication: Diabetes mellitus
     Route: 048
     Dates: start: 20220414, end: 20220415
  29. INSULIN HUMAN [Concomitant]
     Active Substance: INSULIN HUMAN
     Indication: Diabetes mellitus
     Dosage: 10 U
     Route: 058
     Dates: start: 20220414, end: 20220415
  30. POTASSIUM CHLORIDE [Concomitant]
     Active Substance: POTASSIUM CHLORIDE
     Route: 048
     Dates: start: 20220414, end: 20220415
  31. BISOPROLOL FUMARATE\PERINDOPRIL ARGININE [Concomitant]
     Active Substance: BISOPROLOL FUMARATE\PERINDOPRIL ARGININE
     Indication: Hypertension
     Route: 048
     Dates: start: 20220414
  32. INSULIN HUMAN [Concomitant]
     Active Substance: INSULIN HUMAN
     Indication: Diabetes mellitus
     Dates: start: 20220415, end: 20220422
  33. SERTRALINE HYDROCHLORIDE [Concomitant]
     Active Substance: SERTRALINE HYDROCHLORIDE
     Indication: Depression
     Route: 048
     Dates: start: 20220415
  34. PANTOPRAZOLE SODIUM [Concomitant]
     Active Substance: PANTOPRAZOLE SODIUM
     Route: 048
     Dates: start: 20220414
  35. HASCOVIR [Concomitant]
     Route: 048
     Dates: start: 20220414

REACTIONS (2)
  - Hyperglycaemia [Recovered/Resolved]
  - Hypoglycaemia [Recovered/Resolved]

NARRATIVE: CASE EVENT DATE: 20220328
